FAERS Safety Report 7001251-2 (Version None)
Quarter: 2010Q3

REPORT INFORMATION
  Report Type: 
  Country: None (occurrence: None)
  Receive Date: 20100920
  Receipt Date: 20070507
  Transmission Date: 20110219
  Serious: Yes (Hospitalization)
  Sender: FDA-Public Use
  Company Number: US-ASTRAZENECA-2006UW21218

PATIENT
  Age: 13756 Day
  Sex: Female
  Weight: 76.2 kg

DRUGS (7)
  1. SEROQUEL [Suspect]
     Indication: MENTAL DISORDER
     Route: 048
     Dates: start: 20000605
  2. SEROQUEL [Suspect]
     Route: 048
     Dates: end: 20060101
  3. ABILIFY [Concomitant]
  4. DEPAKOTE [Concomitant]
     Route: 048
     Dates: start: 20000703
  5. PHENOBARBITAL [Concomitant]
     Route: 048
     Dates: start: 19960923
  6. ASPIRIN [Concomitant]
     Dosage: 81 - 325 MG
     Route: 048
     Dates: start: 19980501
  7. THEOPHYLLINE [Concomitant]
     Route: 048
     Dates: start: 20010701

REACTIONS (2)
  - DIABETES MELLITUS [None]
  - TYPE 2 DIABETES MELLITUS [None]
